FAERS Safety Report 21130213 (Version 1)
Quarter: 2022Q3

REPORT INFORMATION
  Report Type: Report from Study
  Country: BR (occurrence: BR)
  Receive Date: 20220726
  Receipt Date: 20220726
  Transmission Date: 20221027
  Serious: Yes (Other)
  Sender: FDA-Public Use
  Company Number: BR-ABBVIE-22K-020-4479426-00

PATIENT
  Sex: Female
  Weight: 44 kg

DRUGS (4)
  1. HUMIRA [Suspect]
     Active Substance: ADALIMUMAB
     Indication: Crohn^s disease
     Route: 058
     Dates: start: 20180103
  2. DIAZEPAM [Concomitant]
     Active Substance: DIAZEPAM
     Indication: Panic disorder
     Route: 065
  3. SERTRALINE [Concomitant]
     Active Substance: SERTRALINE HYDROCHLORIDE
     Indication: Panic disorder
     Route: 065
  4. MANNITOL [Concomitant]
     Active Substance: MANNITOL
     Indication: Product used for unknown indication
     Route: 065

REACTIONS (10)
  - Loss of consciousness [Unknown]
  - Pallor [Unknown]
  - Weight decreased [Unknown]
  - Malaise [Unknown]
  - Illness [Unknown]
  - Anaemia [Unknown]
  - Crohn^s disease [Unknown]
  - Gastrointestinal pain [Unknown]
  - Tremor [Unknown]
  - Unevaluable event [Unknown]
